FAERS Safety Report 11100450 (Version 4)
Quarter: 2015Q3

REPORT INFORMATION
  Report Type: Report from Study
  Country: DE (occurrence: DE)
  Receive Date: 20150508
  Receipt Date: 20150709
  Transmission Date: 20151125
  Serious: Yes (Hospitalization, Other)
  Sender: FDA-Public Use
  Company Number: PHHY2015DE051999

PATIENT
  Age: 75 Year
  Sex: Female
  Weight: 69 kg

DRUGS (9)
  1. LEFLUNOMIDE. [Suspect]
     Active Substance: LEFLUNOMIDE
     Indication: RHEUMATOID ARTHRITIS
     Dosage: 20 MG, QD
     Route: 048
     Dates: start: 200810
  2. COLECALCIFEROL [Concomitant]
     Active Substance: CHOLECALCIFEROL
     Indication: PROPHYLAXIS
     Route: 065
     Dates: start: 20140715
  3. BISOPROLOL [Suspect]
     Active Substance: BISOPROLOL
     Indication: HYPERTENSION
     Dosage: 5 MG, QD
     Route: 048
     Dates: start: 2000
  4. SIMVASTATIN. [Concomitant]
     Active Substance: SIMVASTATIN
     Indication: HYPERCHOLESTEROLAEMIA
     Route: 065
     Dates: start: 2004
  5. ZOPICLON [Concomitant]
     Active Substance: ZOPICLONE
     Indication: INSOMNIA
     Route: 065
     Dates: start: 20130909
  6. BENSERAZIDE, LEVODOPA [Suspect]
     Active Substance: BENSERAZIDE\LEVODOPA
     Indication: RESTLESS LEGS SYNDROME
     Dosage: 0.5 DF, QD (0-0-0.5)
     Route: 048
     Dates: start: 20140820
  7. CO-DIOVAN [Suspect]
     Active Substance: HYDROCHLOROTHIAZIDE\VALSARTAN
     Indication: HYPERTENSION
     Dosage: UNK
     Route: 065
     Dates: start: 2005
  8. TOFACITINIB CITRATE [Suspect]
     Active Substance: TOFACITINIB CITRATE
     Indication: RHEUMATOID ARTHRITIS
     Dosage: 2 DF, QD
     Route: 048
     Dates: start: 20101202
  9. PHENPROCOUMON [Concomitant]
     Active Substance: PHENPROCOUMON
     Indication: PROPHYLAXIS
     Route: 065
     Dates: start: 20100521

REACTIONS (18)
  - Nausea [Unknown]
  - Cholelithiasis [Unknown]
  - Chronic gastritis [Not Recovered/Not Resolved]
  - Abdominal pain [Not Recovered/Not Resolved]
  - Transient ischaemic attack [Unknown]
  - Actinic keratosis [Not Recovered/Not Resolved]
  - Arteriosclerosis [Unknown]
  - Hepatic steatosis [Unknown]
  - Gastritis [Recovered/Resolved]
  - Hepatomegaly [Unknown]
  - Supraventricular tachycardia [Recovered/Resolved]
  - Renal cyst [Unknown]
  - Pancreatic steatosis [Unknown]
  - Gastric mucosa erythema [Unknown]
  - Osteoarthritis [Recovered/Resolved]
  - Uterine leiomyoma [Unknown]
  - Normochromic normocytic anaemia [Unknown]
  - Abdominal discomfort [Unknown]

NARRATIVE: CASE EVENT DATE: 2007
